FAERS Safety Report 16904166 (Version 1)
Quarter: 2019Q4

REPORT INFORMATION
  Report Type: Spontaneous
  Country: JP (occurrence: JP)
  Receive Date: 20191010
  Receipt Date: 20191010
  Transmission Date: 20200122
  Serious: Yes (Other)
  Sender: FDA-Public Use
  Company Number: JP-PFIZER INC-2019428951

PATIENT

DRUGS (1)
  1. SELARA [Suspect]
     Active Substance: EPLERENONE
     Dosage: UNK, DAILY (REPORTED AS 50)
     Route: 048

REACTIONS (3)
  - Product use issue [Unknown]
  - Renal failure [Unknown]
  - Off label use [Unknown]
